FAERS Safety Report 22305214 (Version 2)
Quarter: 2023Q2

REPORT INFORMATION
  Report Type: Spontaneous
  Country: US (occurrence: US)
  Receive Date: 20230510
  Receipt Date: 20230512
  Transmission Date: 20230721
  Serious: No
  Sender: FDA-Public Use
  Company Number: US-ABBVIE-4759640

PATIENT
  Age: 65 Year
  Sex: Female
  Weight: 45 kg

DRUGS (3)
  1. CREON [Suspect]
     Active Substance: PANCRELIPASE AMYLASE\PANCRELIPASE LIPASE\PANCRELIPASE PROTEASE
     Indication: Gastric disorder
     Dosage: FORM STRENGTH: 36000 UNIT?FREQUENCY TEXT: 2 CAPSULE WITH MEALS AND 1 WITH SNACK
     Route: 048
     Dates: start: 202001, end: 202005
  2. CREON [Suspect]
     Active Substance: PANCRELIPASE AMYLASE\PANCRELIPASE LIPASE\PANCRELIPASE PROTEASE
     Indication: Gastric disorder
     Route: 048
     Dates: start: 202005, end: 202007
  3. OMEPRAZOLE [Concomitant]
     Active Substance: OMEPRAZOLE
     Indication: Gastrooesophageal reflux disease

REACTIONS (7)
  - Sinus disorder [Unknown]
  - Condition aggravated [Unknown]
  - Drug ineffective [Recovered/Resolved]
  - Drug ineffective [Unknown]
  - Mast cell activation syndrome [Unknown]
  - Off label use [Recovered/Resolved]
  - Histamine intolerance [Unknown]

NARRATIVE: CASE EVENT DATE: 20200101
